FAERS Safety Report 18520646 (Version 3)
Quarter: 2020Q4

REPORT INFORMATION
  Report Type: Spontaneous
  Country: ZA (occurrence: ZA)
  Receive Date: 20201118
  Receipt Date: 20201202
  Transmission Date: 20210114
  Serious: Yes (Death, Life-Threatening, Other)
  Sender: FDA-Public Use
  Company Number: ZA-ABBVIE-20K-143-3656209-00

PATIENT
  Age: 44 Year
  Sex: Male
  Weight: 65 kg

DRUGS (1)
  1. VENCLEXTA [Suspect]
     Active Substance: VENETOCLAX
     Indication: CHRONIC LYMPHOCYTIC LEUKAEMIA
     Dosage: DAY 1
     Route: 048

REACTIONS (5)
  - C-reactive protein increased [Unknown]
  - Sepsis [Fatal]
  - Multiple organ dysfunction syndrome [Fatal]
  - Pancytopenia [Unknown]
  - Neutrophil count increased [Unknown]

NARRATIVE: CASE EVENT DATE: 20201007
